FAERS Safety Report 7264599-2 (Version None)
Quarter: 2011Q1

REPORT INFORMATION
  Report Type: 
  Country: None (occurrence: None)
  Receive Date: 20110131
  Receipt Date: 20110120
  Transmission Date: 20110831
  Serious: No
  Sender: FDA-Public Use
  Company Number: US-PFIZER INC-2011014261

PATIENT
  Sex: Male
  Weight: 104.33 kg

DRUGS (7)
  1. SOMA [Concomitant]
     Indication: BACK PAIN
     Dosage: UNK
     Route: 048
  2. NASONEX [Concomitant]
     Indication: SINUS DISORDER
     Dosage: UNK
     Route: 045
  3. TYLENOL W/ CODEINE NO. 4 [Concomitant]
     Indication: BACK PAIN
     Route: 048
  4. XANAX [Concomitant]
     Indication: BACK PAIN
     Dosage: 0.5 MG, UNK
     Route: 048
  5. VIAGRA [Suspect]
     Indication: ERECTILE DYSFUNCTION
     Dosage: 50 MG, UNK
     Route: 048
  6. VIAGRA [Suspect]
     Dosage: 100 MG, UNK
  7. OLOPATADINE HYDROCHLORIDE [Concomitant]
     Indication: SINUS DISORDER
     Dosage: UNK

REACTIONS (1)
  - DRUG INEFFECTIVE [None]
